FAERS Safety Report 7569580-1 (Version None)
Quarter: 2011Q2

REPORT INFORMATION
  Report Type: 
  Country: None (occurrence: None)
  Receive Date: 20110621
  Receipt Date: 20110621
  Transmission Date: 20111010
  Serious: Yes (Death)
  Sender: FDA-Public Use
  Company Number: None

PATIENT
  Age: 82 Year
  Sex: Male

DRUGS (3)
  1. LUCENTIS [Suspect]
     Indication: RETINAL VEIN OCCLUSION
     Dosage: 0.5 MG PRN
     Dates: start: 20101004
  2. PREDNISONE [Concomitant]
  3. ZYVOX [Concomitant]

REACTIONS (1)
  - PULMONARY FIBROSIS [None]
